FAERS Safety Report 5068868-6 (Version None)
Quarter: 2006Q3

REPORT INFORMATION
  Report Type: 
  Country: None (occurrence: None)
  Receive Date: 20060802
  Receipt Date: 20060512
  Transmission Date: 20061208
  Serious: No
  Sender: FDA-Public Use
  Company Number: US-BRISTOL-MYERS SQUIBB COMPANY-13375944

PATIENT
  Age: 78 Year
  Sex: Female

DRUGS (4)
  1. WARFARIN SODIUM [Suspect]
     Indication: COAGULATION FACTOR V LEVEL ABNORMAL
  2. LIPITOR [Concomitant]
  3. FOSAMAX [Concomitant]
  4. HYDROCHLOROTHIAZIDE [Concomitant]

REACTIONS (2)
  - HEADACHE [None]
  - INTERNATIONAL NORMALISED RATIO INCREASED [None]
